FAERS Safety Report 18917380 (Version 1)
Quarter: 2021Q1

REPORT INFORMATION
  Report Type: Spontaneous
  Country: HN (occurrence: HN)
  Receive Date: 20210219
  Receipt Date: 20210219
  Transmission Date: 20210420
  Serious: Yes (Other)
  Sender: FDA-Public Use
  Company Number: HN-PFIZER INC-2021159341

PATIENT
  Age: 69 Year
  Sex: Female

DRUGS (1)
  1. NORVASC [Suspect]
     Active Substance: AMLODIPINE BESYLATE
     Dosage: 1 DF, DAILY
     Route: 048
     Dates: start: 2016

REACTIONS (4)
  - Diabetes mellitus [Unknown]
  - Gait disturbance [Unknown]
  - Mobility decreased [Unknown]
  - Ligament injury [Unknown]
